FAERS Safety Report 12010253 (Version 2)
Quarter: 2016Q1

REPORT INFORMATION
  Report Type: Spontaneous
  Country: DE (occurrence: DE)
  Receive Date: 20160205
  Receipt Date: 20160219
  Transmission Date: 20160526
  Serious: Yes (Death, Other)
  Sender: FDA-Public Use
  Company Number: DE-AMGEN-DEUSP2015016402

PATIENT
  Age: 30 Year
  Sex: Female

DRUGS (1)
  1. PROLIA [Suspect]
     Active Substance: DENOSUMAB
     Indication: OSTEOGENESIS IMPERFECTA
     Dosage: 60 MG, UNK
     Route: 065

REACTIONS (4)
  - Off label use [Unknown]
  - Femur fracture [Unknown]
  - Cerebral haemorrhage [Fatal]
  - Thalamus haemorrhage [Fatal]

NARRATIVE: CASE EVENT DATE: 20151030
